FAERS Safety Report 5250574-6 (Version None)
Quarter: 2007Q1

REPORT INFORMATION
  Report Type: 
  Country: None (occurrence: None)
  Receive Date: 20070228
  Receipt Date: 20060802
  Transmission Date: 20070707
  Serious: Yes (Hospitalization)
  Sender: FDA-Public Use
  Company Number: US-GLAXOSMITHKLINE-A0607448A

PATIENT
  Age: 28 Year
  Sex: Female
  Weight: 57.3 kg

DRUGS (4)
  1. LAMICTAL [Suspect]
     Indication: BIPOLAR DISORDER
     Dosage: 25MG PER DAY
     Route: 048
     Dates: start: 20060509, end: 20060525
  2. WELLBUTRIN XL [Concomitant]
  3. LEXAPRO [Concomitant]
  4. ORTHO TRI-CYCLEN [Concomitant]

REACTIONS (7)
  - FEELING ABNORMAL [None]
  - HEADACHE [None]
  - INFLUENZA LIKE ILLNESS [None]
  - MYALGIA [None]
  - PYREXIA [None]
  - RASH [None]
  - VOMITING [None]
